FAERS Safety Report 25985327 (Version 1)
Quarter: 2025Q4

REPORT INFORMATION
  Report Type: Spontaneous
  Country: US (occurrence: None)
  Receive Date: 20251031
  Receipt Date: 20251031
  Transmission Date: 20260118
  Serious: Yes (Other)
  Sender: FDA-CTU
  Company Number: None

PATIENT
  Age: 63 Year
  Sex: Female

DRUGS (3)
  1. HUMIRA [Suspect]
     Active Substance: ADALIMUMAB
  2. COSENTYX [Suspect]
     Active Substance: SECUKINUMAB
  3. BIMZELX [Suspect]
     Active Substance: BIMEKIZUMAB-BKZX

REACTIONS (2)
  - Intentional dose omission [None]
  - Breast mass [None]
